FAERS Safety Report 6897589-X (Version None)
Quarter: 2010Q3

REPORT INFORMATION
  Report Type: 
  Country: None (occurrence: None)
  Receive Date: 20100802
  Receipt Date: 20070623
  Transmission Date: 20110219
  Serious: No
  Sender: FDA-Public Use
  Company Number: US-PFIZER INC-2007052295

PATIENT
  Sex: Female

DRUGS (1)
  1. LYRICA [Suspect]
     Dates: start: 20070620

REACTIONS (2)
  - DIZZINESS [None]
  - NAUSEA [None]
